FAERS Safety Report 21728368 (Version 2)
Quarter: 2023Q1

REPORT INFORMATION
  Report Type: Spontaneous
  Country: US (occurrence: US)
  Receive Date: 20221214
  Receipt Date: 20230314
  Transmission Date: 20230418
  Serious: Yes (Life-Threatening, Other)
  Sender: FDA-Public Use
  Company Number: US-PFIZER INC-PV202200122201

PATIENT
  Age: 75 Year
  Sex: Male

DRUGS (2)
  1. IBRANCE [Suspect]
     Active Substance: PALBOCICLIB
     Dosage: 125 MG
  2. IBRANCE [Suspect]
     Active Substance: PALBOCICLIB
     Dosage: 75 MG

REACTIONS (8)
  - Near death experience [Unknown]
  - Loss of consciousness [Unknown]
  - Drug intolerance [Unknown]
  - Fall [Unknown]
  - Loss of personal independence in daily activities [Unknown]
  - Cardiac disorder [Unknown]
  - Asthenia [Unknown]
  - Eye ulcer [Unknown]
